FAERS Safety Report 15624582 (Version 7)
Quarter: 2020Q2

REPORT INFORMATION
  Report Type: Spontaneous
  Country: JP (occurrence: JP)
  Receive Date: 20181116
  Receipt Date: 20200413
  Transmission Date: 20200713
  Serious: Yes (Hospitalization, Disabling, Other)
  Sender: FDA-Public Use
  Company Number: JP-BRISTOL-MYERS SQUIBB COMPANY-BMS-2018-015545

PATIENT
  Age: 66 Year
  Sex: Male
  Weight: 35 kg

DRUGS (4)
  1. LUNESTA [Concomitant]
     Active Substance: ESZOPICLONE
     Indication: INSOMNIA
     Dosage: 3 MILLIGRAM
     Route: 048
  2. THYRADIN [Concomitant]
     Active Substance: LEVOTHYROXINE
     Indication: HYPOTHYROIDISM
     Dosage: 50 MICROGRAM, EVERY DAY
     Route: 048
     Dates: start: 20160215
  3. OPDIVO [Suspect]
     Active Substance: NIVOLUMAB
     Indication: HEAD AND NECK CANCER METASTATIC
     Dosage: 110 MILLIGRAM, Q2WK
     Route: 041
     Dates: start: 20170929, end: 20171124
  4. OPDIVO [Suspect]
     Active Substance: NIVOLUMAB
     Indication: HYPOPHARYNGEAL CANCER
     Route: 065

REACTIONS (3)
  - Interstitial lung disease [Recovered/Resolved]
  - Adrenal insufficiency [Not Recovered/Not Resolved]
  - Adrenocortical insufficiency acute [Not Recovered/Not Resolved]

NARRATIVE: CASE EVENT DATE: 20171219
